FAERS Safety Report 9166164 (Version 1)
Quarter: 2013Q1

REPORT INFORMATION
  Report Type: Spontaneous
  Country: US (occurrence: US)
  Receive Date: 20130315
  Receipt Date: 20130315
  Transmission Date: 20140127
  Serious: Yes (Hospitalization)
  Sender: FDA-Public Use
  Company Number: US-TEVA-391678USA

PATIENT
  Age: 15 Year
  Sex: Female

DRUGS (8)
  1. AZITHROMYCIN [Suspect]
     Indication: ATYPICAL PNEUMONIA
     Route: 065
  2. MESALAZINE [Suspect]
     Indication: COLITIS ULCERATIVE
     Dosage: 4.8 MILLIGRAM DAILY; MAINTENANCE (}3 MONTHS)
     Route: 065
  3. MERCAPTOPURINE [Concomitant]
     Indication: COLITIS ULCERATIVE
     Dosage: 50 MILLIGRAM DAILY;
     Route: 065
  4. AMLODIPINE [Concomitant]
     Indication: HYPERTENSION
     Route: 065
  5. PREDNISONE [Concomitant]
     Route: 065
  6. LABETALOL [Concomitant]
     Route: 065
  7. CLONIDINE [Concomitant]
     Route: 061
  8. GANCICLOVIR [Concomitant]
     Indication: CYTOMEGALOVIRUS INFECTION
     Route: 065

REACTIONS (7)
  - Renal failure acute [Recovering/Resolving]
  - Respiratory failure [Recovering/Resolving]
  - Cytomegalovirus infection [Recovering/Resolving]
  - Focal segmental glomerulosclerosis [Recovering/Resolving]
  - Renal tubular necrosis [Recovering/Resolving]
  - Tubulointerstitial nephritis [Recovering/Resolving]
  - Atypical pneumonia [Recovering/Resolving]
